FAERS Safety Report 18551634 (Version 1)
Quarter: 2020Q4

REPORT INFORMATION
  Report Type: Spontaneous
  Country: US (occurrence: US)
  Receive Date: 20201126
  Receipt Date: 20201126
  Transmission Date: 20210114
  Serious: Yes (Other)
  Sender: FDA-Public Use
  Company Number: US-009507513-2011USA010376

PATIENT
  Age: 51 Year
  Sex: Male
  Weight: 85.3 kg

DRUGS (6)
  1. LIRAGLUTIDE [Suspect]
     Active Substance: LIRAGLUTIDE
     Indication: TYPE 2 DIABETES MELLITUS
     Dosage: UNKNOWN
     Route: 065
     Dates: start: 20160405, end: 20160412
  2. HYDROCHLOROTHIAZIDE. [Concomitant]
     Active Substance: HYDROCHLOROTHIAZIDE
     Route: 065
  3. PRINIVIL [Suspect]
     Active Substance: LISINOPRIL
     Indication: HYPERTENSION
     Dosage: UNKNOWN
     Route: 065
     Dates: start: 201504, end: 201604
  4. ATORVASTATIN [Concomitant]
     Active Substance: ATORVASTATIN
     Dosage: UNKNOWN
     Route: 065
  5. METOPROLOL. [Concomitant]
     Active Substance: METOPROLOL
     Route: 065
  6. AMLODIPINE [Concomitant]
     Active Substance: AMLODIPINE BESYLATE
     Dosage: UNKNOWN
     Route: 065

REACTIONS (1)
  - Lip swelling [Not Recovered/Not Resolved]

NARRATIVE: CASE EVENT DATE: 20160412
